FAERS Safety Report 16139884 (Version 1)
Quarter: 2019Q1

REPORT INFORMATION
  Report Type: Report from Study
  Country: US (occurrence: US)
  Receive Date: 20190331
  Receipt Date: 20190331
  Transmission Date: 20190418
  Serious: No
  Sender: FDA-Public Use
  Company Number: PHEH2019US013489

PATIENT
  Sex: Male

DRUGS (1)
  1. EXTAVIA [Suspect]
     Active Substance: INTERFERON BETA-1B
     Indication: MULTIPLE SCLEROSIS
     Dosage: UNK
     Route: 065
     Dates: start: 201903

REACTIONS (3)
  - Injection site reaction [Recovering/Resolving]
  - Injection site erythema [Recovering/Resolving]
  - Back pain [Recovered/Resolved]
